FAERS Safety Report 4642269-4 (Version None)
Quarter: 2005Q2

REPORT INFORMATION
  Report Type: 
  Country: None (occurrence: None)
  Receive Date: 20050422
  Receipt Date: 20050412
  Transmission Date: 20051028
  Serious: Yes (Hospitalization)
  Sender: FDA-Public Use
  Company Number: CA-AMGEN-US126339

PATIENT
  Sex: Female

DRUGS (8)
  1. NEUPOGEN [Suspect]
     Indication: CHEMOTHERAPY
     Route: 058
     Dates: start: 20041201, end: 20050314
  2. EPIRUBICIN [Suspect]
     Route: 042
     Dates: start: 20041130, end: 20050125
  3. CYCLOPHOSPHAMIDE [Suspect]
     Route: 042
     Dates: start: 20041130, end: 20050125
  4. TAXOL [Concomitant]
     Route: 042
     Dates: start: 20050228, end: 20050301
  5. EPOGEN [Concomitant]
     Route: 058
     Dates: start: 20041201, end: 20050405
  6. DEXAMETHASONE [Concomitant]
     Route: 048
     Dates: start: 20050301, end: 20050303
  7. ONDANSETRON [Concomitant]
     Route: 048
     Dates: start: 20050301, end: 20050303
  8. PROCHLORPERAZINE [Concomitant]
     Route: 048
     Dates: start: 20050301

REACTIONS (2)
  - PERICARDIAL EFFUSION [None]
  - PNEUMONITIS [None]
